FAERS Safety Report 19981277 (Version 2)
Quarter: 2021Q4

REPORT INFORMATION
  Report Type: Spontaneous
  Country: CN (occurrence: CN)
  Receive Date: 20211021
  Receipt Date: 20211102
  Transmission Date: 20220303
  Serious: Yes (Hospitalization, Other)
  Sender: FDA-Public Use
  Company Number: CN-ADVANZ PHARMA-202110007148

PATIENT

DRUGS (1)
  1. HYDROXYCHLOROQUINE SULFATE [Suspect]
     Active Substance: HYDROXYCHLOROQUINE SULFATE
     Indication: Systemic lupus erythematosus
     Dosage: UNK (FILM COATED TABLET; FOR SEVERAL MONTHS )
     Route: 065
     Dates: start: 2013

REACTIONS (9)
  - Systemic lupus erythematosus [Unknown]
  - Antinuclear antibody increased [Unknown]
  - Double stranded DNA antibody positive [Unknown]
  - Complement factor decreased [Unknown]
  - Beta-2 glycoprotein antibody positive [Unknown]
  - Cardiolipin antibody positive [Unknown]
  - Tachycardia [Unknown]
  - Cardiac disorder [Unknown]
  - Maculopathy [Unknown]

NARRATIVE: CASE EVENT DATE: 20190101
